FAERS Safety Report 4906280-8 (Version None)
Quarter: 2006Q1

REPORT INFORMATION
  Report Type: 
  Country: None (occurrence: None)
  Receive Date: 20060209
  Receipt Date: 20051026
  Transmission Date: 20060701
  Serious: Yes (Other)
  Sender: FDA-Public Use
  Company Number: DE-AVENTIS-200512415DE

PATIENT
  Age: 26 Year
  Sex: Female

DRUGS (2)
  1. CLEXANE [Suspect]
     Route: 058
     Dates: start: 20050701
  2. FALITHROM [Concomitant]
     Dates: end: 20050701

REACTIONS (2)
  - ABORTION MISSED [None]
  - DRUG EXPOSURE DURING PREGNANCY [None]
